FAERS Safety Report 9645328 (Version 1)
Quarter: 2013Q4

REPORT INFORMATION
  Report Type: Spontaneous
  Country: US (occurrence: None)
  Receive Date: 20131023
  Receipt Date: 20131023
  Transmission Date: 20140711
  Serious: No
  Sender: FDA-Public Use
  Company Number: None

PATIENT
  Sex: 0

DRUGS (1)
  1. NIACIN [Suspect]

REACTIONS (4)
  - Flushing [None]
  - Hypothermia [None]
  - Malaise [None]
  - Cardiac disorder [None]
